FAERS Safety Report 4382195-1 (Version None)
Quarter: 2004Q2

REPORT INFORMATION
  Report Type: 
  Country: None (occurrence: None)
  Receive Date: 20040618
  Receipt Date: 20040618
  Transmission Date: 20050107
  Serious: Yes (Other)
  Sender: FDA-Public Use
  Company Number: None

PATIENT
  Sex: Male
  Weight: 136.0791 kg

DRUGS (2)
  1. EFFEXOR XR [Suspect]
     Indication: DEPRESSION
     Dosage: 37.5  1X  A DAY ORAL
     Route: 048
     Dates: start: 20040612, end: 20040615
  2. EFFEXOR XR [Suspect]
     Indication: PANIC DISORDER
     Dosage: 37.5  1X  A DAY ORAL
     Route: 048
     Dates: start: 20040612, end: 20040615

REACTIONS (2)
  - BLOOD PRESSURE INCREASED [None]
  - HEART RATE INCREASED [None]
